FAERS Safety Report 5409838-5 (Version None)
Quarter: 2007Q3

REPORT INFORMATION
  Report Type: 
  Country: None (occurrence: None)
  Receive Date: 20070807
  Receipt Date: 20070724
  Transmission Date: 20080115
  Serious: Yes (Other)
  Sender: FDA-Public Use
  Company Number: 2007S1000169

PATIENT
  Age: 56 Year
  Sex: Male
  Weight: 63.0046 kg

DRUGS (7)
  1. ACITRETIN [Suspect]
     Indication: PSORIASIS
     Dosage: 25 MG; QD; PO, 10 MG; QD; PO
     Route: 048
     Dates: start: 20070209, end: 20070101
  2. ACITRETIN [Suspect]
     Indication: PSORIASIS
     Dosage: 25 MG; QD; PO, 10 MG; QD; PO
     Route: 048
     Dates: start: 20070101
  3. CLONAZEPAM [Suspect]
     Indication: DRUG USE FOR UNKNOWN INDICATION
  4. LAMALINE [Suspect]
     Indication: DRUG USE FOR UNKNOWN INDICATION
  5. FONZYLANE              (BUFLOMEDIL HYDROCHLORIDE) [Suspect]
     Indication: DRUG USE FOR UNKNOWN INDICATION
  6. PREVISCAN                         (PENTOXIFYLLINE) [Suspect]
     Indication: DRUG USE FOR UNKNOWN INDICATION
  7. ZYBAN [Suspect]
     Indication: DRUG USE FOR UNKNOWN INDICATION
     Dates: start: 20070603, end: 20070621

REACTIONS (2)
  - DRUG INTERACTION [None]
  - GAMMA-GLUTAMYLTRANSFERASE INCREASED [None]
